FAERS Safety Report 4589000-9 (Version None)
Quarter: 2005Q1

REPORT INFORMATION
  Report Type: 
  Country: None (occurrence: None)
  Receive Date: 20050125
  Receipt Date: 20040928
  Transmission Date: 20050727
  Serious: No
  Sender: FDA-Public Use
  Company Number: USA040670757

PATIENT
  Age: 73 Year
  Sex: Female
  Weight: 59 kg

DRUGS (6)
  1. FORTEO [Suspect]
     Indication: OSTEOPOROSIS
     Dosage: 20 UG DAY
     Dates: start: 20040618
  2. LIPITOR [Concomitant]
  3. PROCARDIA XL [Concomitant]
  4. NEXIUM [Concomitant]
  5. CALCIUM GLUCONATE [Concomitant]
  6. CITRICAL (CALCIUM CARBONATE) [Concomitant]

REACTIONS (4)
  - DIZZINESS [None]
  - INJECTION SITE ERYTHEMA [None]
  - MUSCLE SPASMS [None]
  - MUSCLE TIGHTNESS [None]
